FAERS Safety Report 8298761-7 (Version None)
Quarter: 2012Q2

REPORT INFORMATION
  Report Type: 
  Country: None (occurrence: None)
  Receive Date: 20120419
  Receipt Date: 20120410
  Transmission Date: 20120825
  Serious: Yes (Hospitalization)
  Sender: FDA-Public Use
  Company Number: BR-ASTRAZENECA-2012SE23996

PATIENT
  Age: 85 Year
  Sex: Female
  Weight: 56 kg

DRUGS (1)
  1. CRESTOR [Suspect]
     Indication: HYPERCHOLESTEROLAEMIA
     Route: 048

REACTIONS (3)
  - DIVERTICULITIS [None]
  - OEDEMA PERIPHERAL [None]
  - MALAISE [None]
